FAERS Safety Report 17282256 (Version 1)
Quarter: 2020Q1

REPORT INFORMATION
  Report Type: Spontaneous
  Country: US (occurrence: US)
  Receive Date: 20200116
  Receipt Date: 20200116
  Transmission Date: 20200409
  Serious: No
  Sender: FDA-Public Use
  Company Number: None

PATIENT
  Age: 63 Year
  Sex: Male

DRUGS (1)
  1. LAMOTRIGINE. [Suspect]
     Active Substance: LAMOTRIGINE
     Route: 048
     Dates: start: 20190823, end: 20191123

REACTIONS (4)
  - Vertigo [None]
  - Recalled product administered [None]
  - Dizziness [None]
  - Manufacturing materials contamination [None]

NARRATIVE: CASE EVENT DATE: 20191104
